FAERS Safety Report 4974496-0 (Version None)
Quarter: 2006Q1

REPORT INFORMATION
  Report Type: 
  Country: None (occurrence: None)
  Receive Date: 20060216
  Receipt Date: 20051221
  Transmission Date: 20060701
  Serious: No
  Sender: FDA-Public Use
  Company Number: TPA2005A01709

PATIENT

DRUGS (4)
  1. ROZEREM [Suspect]
     Dosage: SEE IMAGE
     Route: 048
  2. DURAGESIC-100 [Concomitant]
  3. REMERON [Concomitant]
  4. CATAPRES [Concomitant]

REACTIONS (1)
  - HYPERSOMNIA [None]
